FAERS Safety Report 13172043 (Version 1)
Quarter: 2017Q1

REPORT INFORMATION
  Report Type: Spontaneous
  Country: DE (occurrence: DE)
  Receive Date: 20170131
  Receipt Date: 20170131
  Transmission Date: 20170428
  Serious: Yes (Life-Threatening, Hospitalization, Other)
  Sender: FDA-Public Use
  Company Number: DE-009507513-1701DEU014421

PATIENT
  Age: 67 Year
  Sex: Male
  Weight: 94 kg

DRUGS (2)
  1. JANUVIA [Suspect]
     Active Substance: SITAGLIPTIN PHOSPHATE
     Indication: TYPE 2 DIABETES MELLITUS
     Dosage: 100 MG, UNK
     Route: 048
     Dates: start: 201510, end: 201512
  2. TRULICITY [Suspect]
     Active Substance: DULAGLUTIDE
     Indication: TYPE 2 DIABETES MELLITUS
     Dosage: 1.5 MG, EVERY WEEK; FORMULATION: PEN
     Route: 058
     Dates: start: 201512, end: 201610

REACTIONS (3)
  - Jaundice cholestatic [Unknown]
  - Pancreatic carcinoma metastatic [Unknown]
  - Cholangitis [Unknown]

NARRATIVE: CASE EVENT DATE: 201607
